FAERS Safety Report 8157970-8 (Version None)
Quarter: 2012Q1

REPORT INFORMATION
  Report Type: 
  Country: None (occurrence: None)
  Receive Date: 20120222
  Receipt Date: 20120210
  Transmission Date: 20120608
  Serious: Yes (Other)
  Sender: FDA-Public Use
  Company Number: PHHY2012MX012107

PATIENT

DRUGS (2)
  1. RASILEZ [Suspect]
  2. LOSARTAN POTASSIUM [Concomitant]

REACTIONS (1)
  - CEREBRAL HAEMORRHAGE [None]
